FAERS Safety Report 21467592 (Version 3)
Quarter: 2022Q4

REPORT INFORMATION
  Report Type: Report from Study
  Country: GB (occurrence: GB)
  Receive Date: 20221017
  Receipt Date: 20221021
  Transmission Date: 20230112
  Serious: Yes (Hospitalization)
  Sender: FDA-Public Use
  Company Number: GB-ABBVIE-4134265

PATIENT
  Age: 56 Year
  Sex: Male

DRUGS (6)
  1. CARBIDOPA\LEVODOPA [Suspect]
     Active Substance: CARBIDOPA\LEVODOPA
     Indication: Parkinson^s disease
     Dosage: DUODOPA 20MGS/5MGS MD: 15.6MLS, CR:4.0 MLS, ED:2.3 MLS
     Route: 050
  2. CARBIDOPA\LEVODOPA [Suspect]
     Active Substance: CARBIDOPA\LEVODOPA
     Dosage: ED:2.3MLS, 20MGS/5MGS
     Route: 050
     Dates: start: 2022
  3. CARBIDOPA\LEVODOPA [Suspect]
     Active Substance: CARBIDOPA\LEVODOPA
     Dosage: DUODOPA 20MGS/5MGS
     Route: 050
     Dates: end: 202210
  4. CARBIDOPA\LEVODOPA [Concomitant]
     Active Substance: CARBIDOPA\LEVODOPA
     Indication: Product used for unknown indication
  5. RIVASTIGMINE [Concomitant]
     Active Substance: RIVASTIGMINE
     Indication: Product used for unknown indication
     Dosage: PATCH
  6. ENTACAPONE [Concomitant]
     Active Substance: ENTACAPONE
     Indication: Product used for unknown indication
     Dosage: 0.2 DAY

REACTIONS (14)
  - Hospitalisation [Not Recovered/Not Resolved]
  - Feeling jittery [Not Recovered/Not Resolved]
  - Depression [Unknown]
  - Device connection issue [Not Recovered/Not Resolved]
  - Mobility decreased [Unknown]
  - Device issue [Not Recovered/Not Resolved]
  - Tremor [Unknown]
  - Device occlusion [Not Recovered/Not Resolved]
  - On and off phenomenon [Not Recovered/Not Resolved]
  - Device alarm issue [Unknown]
  - Device leakage [Not Recovered/Not Resolved]
  - Dyskinesia [Unknown]
  - Malaise [Unknown]
  - Anger [Unknown]

NARRATIVE: CASE EVENT DATE: 20220901
